FAERS Safety Report 4921989-8 (Version None)
Quarter: 2006Q1

REPORT INFORMATION
  Report Type: 
  Country: None (occurrence: None)
  Receive Date: 20060222
  Receipt Date: 20060222
  Transmission Date: 20060701
  Serious: Yes (Life-Threatening, Hospitalization)
  Sender: FDA-Public Use
  Company Number: None

PATIENT
  Age: 21 Year
  Sex: Male
  Weight: 85.7 kg

DRUGS (6)
  1. MORPHINE [Suspect]
     Indication: PAIN
     Dosage: 1MG/ML PCA
     Dates: start: 20050923, end: 20050924
  2. HYDROMORPHONE HCL [Suspect]
     Indication: PAIN
     Dosage: 0.2 MG/ML PCA
     Dates: start: 20050923, end: 20050924
  3. ANCEF [Concomitant]
  4. DEMEROL [Concomitant]
  5. BENADRYL [Concomitant]
  6. ZOFRAN [Concomitant]

REACTIONS (6)
  - CYANOSIS [None]
  - OXYGEN SATURATION DECREASED [None]
  - PALLOR [None]
  - POST PROCEDURAL COMPLICATION [None]
  - PRURITUS [None]
  - RESPIRATORY ARREST [None]
